FAERS Safety Report 4849273-1 (Version None)
Quarter: 2005Q4

REPORT INFORMATION
  Report Type: 
  Country: None (occurrence: None)
  Receive Date: 20051209
  Receipt Date: 20051129
  Transmission Date: 20060501
  Serious: Yes (Other)
  Sender: FDA-Public Use
  Company Number: JACGBR2000000591

PATIENT
  Sex: Female

DRUGS (1)
  1. PROPULSID [Suspect]
     Indication: DYSPEPSIA
     Route: 048
     Dates: start: 19970901

REACTIONS (2)
  - POLYMYALGIA [None]
  - TACHYCARDIA [None]
